FAERS Safety Report 6735268-X (Version None)
Quarter: 2010Q2

REPORT INFORMATION
  Report Type: 
  Country: None (occurrence: None)
  Receive Date: 20100519
  Receipt Date: 20100505
  Transmission Date: 20101027
  Serious: Yes (Hospitalization)
  Sender: FDA-Public Use
  Company Number: MPS1-1000330

PATIENT
  Age: 15 Year
  Sex: Female
  Weight: 40 kg

DRUGS (1)
  1. ALDURAZYME [Suspect]
     Indication: MUCOPOLYSACCHARIDOSIS I
     Dosage: 23.2 MG, 1X/W, INTRAVENOUS
     Route: 042
     Dates: start: 20050811

REACTIONS (1)
  - PNEUMONIA [None]
